FAERS Safety Report 6441943-7 (Version None)
Quarter: 2009Q4

REPORT INFORMATION
  Report Type: 
  Country: None (occurrence: None)
  Receive Date: 20091116
  Receipt Date: 20091104
  Transmission Date: 20100525
  Serious: Yes (Other)
  Sender: FDA-Public Use
  Company Number: ZA-PFIZER INC-2009293554

PATIENT
  Age: 48 Year
  Sex: Female

DRUGS (1)
  1. SOLU-MEDROL [Suspect]
     Route: 042

REACTIONS (1)
  - CATARACT [None]
